FAERS Safety Report 9307016 (Version 3)
Quarter: 2013Q2

REPORT INFORMATION
  Report Type: Spontaneous
  Country: US (occurrence: US)
  Receive Date: 20130523
  Receipt Date: 20130614
  Transmission Date: 20140414
  Serious: No
  Sender: FDA-Public Use
  Company Number: US-009507513-1305USA013612

PATIENT
  Sex: Male

DRUGS (1)
  1. COPPPERTONE SPORT CLEAR CONTINUOUS SPRAY SUNSCREEN SPF-50 [Suspect]
     Indication: PRODUCT USED FOR UNKNOWN INDICATION
     Dosage: UNK, UNKNOWN
     Route: 061

REACTIONS (2)
  - Skin irritation [Unknown]
  - Expired drug administered [Unknown]
